FAERS Safety Report 10779761 (Version 1)
Quarter: 2015Q1

REPORT INFORMATION
  Report Type: Spontaneous
  Country: US (occurrence: None)
  Receive Date: 20150206
  Receipt Date: 20150206
  Transmission Date: 20150721
  Serious: Yes (Death)
  Sender: FDA-Public Use
  Company Number: None

PATIENT
  Age: 60 Year
  Sex: Male

DRUGS (1)
  1. HUMIRA [Suspect]
     Active Substance: ADALIMUMAB
     Indication: PSORIASIS
     Dosage: SQ
     Dates: start: 20140320, end: 20150120

REACTIONS (3)
  - Urinary tract infection [None]
  - Infection [None]
  - Intestinal obstruction [None]

NARRATIVE: CASE EVENT DATE: 20150120
